FAERS Safety Report 7899238-0 (Version None)
Quarter: 2011Q4

REPORT INFORMATION
  Report Type: 
  Country: None (occurrence: None)
  Receive Date: 20111107
  Receipt Date: 20110912
  Transmission Date: 20120403
  Serious: No
  Sender: FDA-Public Use
  Company Number: US-AMGEN-USASP2011046737

PATIENT
  Sex: Female

DRUGS (4)
  1. METHOTREXATE [Concomitant]
     Dosage: 3 MG, UNK
  2. REMICADE [Concomitant]
  3. ENBREL [Suspect]
     Indication: PSORIATIC ARTHROPATHY
     Dosage: 50 MG, QWK
     Dates: start: 19990101
  4. HUMIRA [Concomitant]

REACTIONS (4)
  - BODY TEMPERATURE FLUCTUATION [None]
  - INJECTION SITE PAIN [None]
  - DYSPHAGIA [None]
  - PSORIATIC ARTHROPATHY [None]
